FAERS Safety Report 23886080 (Version 1)
Quarter: 2024Q2

REPORT INFORMATION
  Report Type: Spontaneous
  Country: US (occurrence: US)
  Receive Date: 20240522
  Receipt Date: 20240522
  Transmission Date: 20240716
  Serious: No
  Sender: FDA-Public Use
  Company Number: US-SA-SAC20240516000146

PATIENT
  Age: 50 Year
  Sex: Female
  Weight: 61.25 kg

DRUGS (1)
  1. DUPIXENT [Suspect]
     Active Substance: DUPILUMAB
     Indication: Nasal polyps
     Dosage: 300 MG, QOW
     Route: 058
     Dates: start: 20220218

REACTIONS (4)
  - Rhinorrhoea [Unknown]
  - Sneezing [Unknown]
  - Product dose omission in error [Unknown]
  - Hypersensitivity [Unknown]
